FAERS Safety Report 14019570 (Version 4)
Quarter: 2017Q4

REPORT INFORMATION
  Report Type: Report from Study
  Country: US (occurrence: US)
  Receive Date: 20170928
  Receipt Date: 20171122
  Transmission Date: 20180321
  Serious: Yes (Other)
  Sender: FDA-Public Use
  Company Number: US-BAYER-2017-180249

PATIENT
  Age: 67 Year
  Sex: Female

DRUGS (4)
  1. STIVARGA [Suspect]
     Active Substance: REGORAFENIB
     Indication: RECTOSIGMOID CANCER
     Dosage: 160MG DAILY (4 TABLETS DAILY)
     Route: 048
     Dates: start: 2017, end: 2017
  2. STIVARGA [Suspect]
     Active Substance: REGORAFENIB
     Indication: RECTOSIGMOID CANCER
     Dosage: 80 MG, DAILY
     Route: 048
     Dates: start: 2017, end: 2017
  3. STIVARGA [Suspect]
     Active Substance: REGORAFENIB
     Indication: RECTOSIGMOID CANCER
     Dosage: 120 MG DAILY 21 DAYS ON 7 DAYS OFF REPEAT CYCLE AS DIRECTED
     Route: 048
     Dates: start: 20170821, end: 2017
  4. STIVARGA [Suspect]
     Active Substance: REGORAFENIB
     Indication: RECTOSIGMOID CANCER
     Dosage: 80 MG DAILY
     Route: 048
     Dates: start: 2017, end: 2017

REACTIONS (6)
  - Skin exfoliation [Not Recovered/Not Resolved]
  - Gait inability [None]
  - Dermatitis allergic [None]
  - Drug intolerance [None]
  - Erythema [Not Recovered/Not Resolved]
  - Blister [Not Recovered/Not Resolved]

NARRATIVE: CASE EVENT DATE: 2017
